FAERS Safety Report 14071045 (Version 7)
Quarter: 2018Q3

REPORT INFORMATION
  Report Type: Spontaneous
  Country: US (occurrence: US)
  Receive Date: 20171010
  Receipt Date: 20180715
  Transmission Date: 20181010
  Serious: Yes (Other)
  Sender: FDA-Public Use
  Company Number: US-JNJFOC-20170717200

PATIENT
  Sex: Female
  Weight: 64 kg

DRUGS (14)
  1. AMLODIPINE [Concomitant]
     Active Substance: AMLODIPINE BESYLATE
  2. IMBRUVICA [Suspect]
     Active Substance: IBRUTINIB
     Indication: WALDENSTROM^S MACROGLOBULINAEMIA
     Route: 048
     Dates: start: 201611, end: 201804
  3. VALSARTAN. [Concomitant]
     Active Substance: VALSARTAN
  4. IRON [Concomitant]
     Active Substance: IRON
  5. XANAX [Concomitant]
     Active Substance: ALPRAZOLAM
  6. VALACYCLOVIR [Concomitant]
     Active Substance: VALACYCLOVIR HYDROCHLORIDE
  7. PREDNISONE. [Concomitant]
     Active Substance: PREDNISONE
  8. MAGNESIUM [Concomitant]
     Active Substance: MAGNESIUM
  9. IMBRUVICA [Suspect]
     Active Substance: IBRUTINIB
     Indication: WALDENSTROM^S MACROGLOBULINAEMIA
     Dosage: DECREASED DOSE
     Route: 048
     Dates: start: 20170321
  10. ALLOPURINOL. [Concomitant]
     Active Substance: ALLOPURINOL
  11. IMBRUVICA [Suspect]
     Active Substance: IBRUTINIB
     Indication: WALDENSTROM^S MACROGLOBULINAEMIA
     Dosage: DECREASED DOSE
     Route: 048
     Dates: start: 2017
  12. VITAMIN D [Concomitant]
     Active Substance: CHOLECALCIFEROL
  13. RANITIDINE. [Concomitant]
     Active Substance: RANITIDINE
  14. KEFLEX [Concomitant]
     Active Substance: CEPHALEXIN

REACTIONS (12)
  - Neuralgia [Not Recovered/Not Resolved]
  - Muscle spasms [Unknown]
  - Pain in extremity [Not Recovered/Not Resolved]
  - Pruritus [Unknown]
  - Gout [Recovering/Resolving]
  - Pain [Recovering/Resolving]
  - Thrombosis [Unknown]
  - Hypertension [Recovering/Resolving]
  - Discomfort [Unknown]
  - Rash [Not Recovered/Not Resolved]
  - Herpes zoster [Recovering/Resolving]
  - Urinary tract infection [Not Recovered/Not Resolved]

NARRATIVE: CASE EVENT DATE: 2017
